FAERS Safety Report 20476202 (Version 1)
Quarter: 2022Q1

REPORT INFORMATION
  Report Type: Spontaneous
  Country: US (occurrence: None)
  Receive Date: 20220215
  Receipt Date: 20220215
  Transmission Date: 20220423
  Serious: Yes (Other)
  Sender: FDA-Public Use
  Company Number: None

PATIENT
  Age: 41 Year
  Sex: Male

DRUGS (1)
  1. SUBOXONE [Suspect]
     Active Substance: BUPRENORPHINE HYDROCHLORIDE\NALOXONE HYDROCHLORIDE
     Indication: Drug dependence
     Dosage: FREQUENCY : TWICE A DAY;?
     Route: 048
     Dates: start: 20201109

REACTIONS (5)
  - Product solubility abnormal [None]
  - Incorrect dose administered [None]
  - Stomatitis [None]
  - Dry mouth [None]
  - Therapeutic product effect incomplete [None]

NARRATIVE: CASE EVENT DATE: 20220210
